FAERS Safety Report 4418148-4 (Version None)
Quarter: 2004Q3

REPORT INFORMATION
  Report Type: 
  Country: None (occurrence: None)
  Receive Date: 20040809
  Receipt Date: 20031201
  Transmission Date: 20050211
  Serious: No
  Sender: FDA-Public Use
  Company Number: US-GLAXOSMITHKLINE-A0441456A

PATIENT
  Age: 51 Year
  Sex: Female

DRUGS (4)
  1. PAXIL [Suspect]
     Dosage: 12.5MG PER DAY
     Route: 048
     Dates: start: 20031001
  2. SYNTHROID [Concomitant]
  3. PEPCID [Concomitant]
  4. ACIPHEX [Concomitant]

REACTIONS (4)
  - ABDOMINAL PAIN UPPER [None]
  - ABDOMINAL SYMPTOM [None]
  - ANXIETY [None]
  - PHARMACEUTICAL PRODUCT COMPLAINT [None]
